FAERS Safety Report 5228311-0 (Version None)
Quarter: 2007Q1

REPORT INFORMATION
  Report Type: 
  Country: None (occurrence: None)
  Receive Date: 20070131
  Receipt Date: 20070119
  Transmission Date: 20070707
  Serious: Yes (Death, Life-Threatening)
  Sender: FDA-Public Use
  Company Number: 2007US000177

PATIENT
  Sex: Male

DRUGS (1)
  1. AMBISOME [Suspect]
     Indication: DRUG USE FOR UNKNOWN INDICATION
     Dosage: IV DRIP
     Route: 041

REACTIONS (3)
  - DISEASE PROGRESSION [None]
  - HYPERKALAEMIA [None]
  - HYPOKALAEMIA [None]
